FAERS Safety Report 20951246 (Version 1)
Quarter: 2022Q2

REPORT INFORMATION
  Report Type: Spontaneous
  Country: US (occurrence: US)
  Receive Date: 20220613
  Receipt Date: 20220613
  Transmission Date: 20220721
  Serious: No
  Sender: FDA-Public Use
  Company Number: US-009507513-2205USA005293

PATIENT
  Age: 32 Year
  Sex: Female

DRUGS (6)
  1. PRIMAXIN IV [Suspect]
     Active Substance: CILASTATIN SODIUM\IMIPENEM
     Indication: Stenotrophomonas infection
     Dosage: 1 GRAM, EVERY 8 H
     Route: 042
  2. PRIMAXIN IV [Suspect]
     Active Substance: CILASTATIN SODIUM\IMIPENEM
     Indication: Candida infection
  3. PRIMAXIN IV [Suspect]
     Active Substance: CILASTATIN SODIUM\IMIPENEM
     Indication: Mucormycosis
  4. MINOCYCLINE [Concomitant]
     Active Substance: MINOCYCLINE HYDROCHLORIDE
     Dosage: 100 MILLIGRAM, TWICE DAILY
  5. AMPHOTERICIN B [Concomitant]
     Active Substance: AMPHOTERICIN B
     Dosage: 5 MILLIGRAM/KILOGRAM, EVERY 24 H
     Route: 042
  6. VANCOMYCIN [Concomitant]
     Active Substance: VANCOMYCIN
     Dosage: 125 MILLIGRAM, FOUR TIMES DAILY
     Route: 048

REACTIONS (1)
  - Product use in unapproved indication [Unknown]
